FAERS Safety Report 16264653 (Version 3)
Quarter: 2019Q4

REPORT INFORMATION
  Report Type: Spontaneous
  Country: US (occurrence: US)
  Receive Date: 20190502
  Receipt Date: 20191216
  Transmission Date: 20200122
  Serious: No
  Sender: FDA-Public Use
  Company Number: US-PFIZER INC-2019185315

PATIENT
  Age: 48 Year
  Sex: Female
  Weight: 52 kg

DRUGS (23)
  1. DOCETAXEL ACTAVIS [Suspect]
     Active Substance: DOCETAXEL
     Indication: TRIPLE NEGATIVE BREAST CANCER
     Dosage: 114.8 MG, CYCLIC (06 CYCLES, EVERY THREE WEEKS)
     Dates: start: 20140904, end: 20150101
  2. PARAPLATIN [Concomitant]
     Active Substance: CARBOPLATIN
     Indication: CHEMOTHERAPY
     Dosage: 679 MG, UNK (IN SODIUM CHLORIDE 0.9%)
  3. HERCEPTIN [Concomitant]
     Active Substance: TRASTUZUMAB
     Dosage: UNK
  4. ATIVAN [Concomitant]
     Active Substance: LORAZEPAM
     Dosage: UNK
  5. DOCETAXEL. [Suspect]
     Active Substance: DOCETAXEL
     Indication: TRIPLE NEGATIVE BREAST CANCER
     Dosage: 114.8 MG, CYCLIC (06 CYCLES, EVERY THREE WEEKS)
     Dates: start: 20140904, end: 20150101
  6. DOCETAXEL TEVA [Suspect]
     Active Substance: DOCETAXEL
     Indication: TRIPLE NEGATIVE BREAST CANCER
     Dosage: 114.8 MG, CYCLIC (06 CYCLES, EVERY THREE WEEKS)
     Dates: start: 20140904, end: 20150101
  7. DOCEFREZ [Suspect]
     Active Substance: DOCETAXEL ANHYDROUS
     Indication: TRIPLE NEGATIVE BREAST CANCER
     Dosage: 114.8 MG, CYCLIC (06 CYCLES, EVERY THREE WEEKS)
     Dates: start: 20140904, end: 20150101
  8. PALONOSETRON. [Concomitant]
     Active Substance: PALONOSETRON HYDROCHLORIDE
     Dosage: UNK
     Dates: start: 20070101
  9. FAMOTIDINE. [Concomitant]
     Active Substance: FAMOTIDINE
     Dosage: UNK
     Dates: start: 20070101
  10. DOCETAXEL. [Suspect]
     Active Substance: DOCETAXEL
     Indication: TRIPLE NEGATIVE BREAST CANCER
     Dosage: 114.8 MG, CYCLIC (06 CYCLES, EVERY THREE WEEKS)
     Dates: start: 20140904, end: 20150101
  11. DOCETAXEL DR. REDDY^S [Suspect]
     Active Substance: DOCETAXEL
     Indication: TRIPLE NEGATIVE BREAST CANCER
     Dosage: 114.8 MG, CYCLIC (06 CYCLES, EVERY THREE WEEKS)
     Dates: start: 20140904, end: 20150101
  12. ARMOUR THYROID [Concomitant]
     Active Substance: THYROID, PORCINE
     Dosage: UNK
  13. LORAZEPAM. [Concomitant]
     Active Substance: LORAZEPAM
     Dosage: UNK
     Dates: start: 20070101
  14. TAXOTERE [Suspect]
     Active Substance: DOCETAXEL
     Indication: TRIPLE NEGATIVE BREAST CANCER
     Dosage: 114.8 MG, CYCLIC (06 CYCLES, EVERY THREE WEEKS)
     Dates: start: 20140904, end: 20150101
  15. DOCETAXEL ACCORD [Suspect]
     Active Substance: DOCETAXEL
     Indication: TRIPLE NEGATIVE BREAST CANCER
     Dosage: 114.8 MG, CYCLIC (06 CYCLES, EVERY THREE WEEKS)
     Dates: start: 20140904, end: 20150101
  16. DOCETAXEL NORTHSTAR [Suspect]
     Active Substance: DOCETAXEL
     Indication: TRIPLE NEGATIVE BREAST CANCER
     Dosage: 114.8 MG, CYCLIC (06 CYCLES, EVERY THREE WEEKS)
     Dates: start: 20140904, end: 20150101
  17. DOCETAXEL SAGENT [Suspect]
     Active Substance: DOCETAXEL
     Indication: TRIPLE NEGATIVE BREAST CANCER
     Dosage: 114.8 MG, CYCLIC (06 CYCLES, EVERY THREE WEEKS)
     Dates: start: 20140904, end: 20150101
  18. ACETAMINOPHEN. [Concomitant]
     Active Substance: ACETAMINOPHEN
     Dosage: UNK
     Dates: start: 20070101
  19. DECADRON [Concomitant]
     Active Substance: DEXAMETHASONE
     Dosage: UNK
     Dates: start: 20070101
  20. DOCETAXEL SANDOZ [Suspect]
     Active Substance: DOCETAXEL
     Indication: TRIPLE NEGATIVE BREAST CANCER
     Dosage: 114.8 MG, CYCLIC (06 CYCLES, EVERY THREE WEEKS)
     Dates: start: 20140904, end: 20150101
  21. DOCETAXEL EAGLE [Suspect]
     Active Substance: DOCETAXEL
     Indication: TRIPLE NEGATIVE BREAST CANCER
     Dosage: 114.8 MG, CYCLIC (06 CYCLES, EVERY THREE WEEKS)
     Dates: start: 20140904, end: 20150101
  22. DOCETAXEL SANOFI-AVENTIS [Suspect]
     Active Substance: DOCETAXEL
     Indication: TRIPLE NEGATIVE BREAST CANCER
     Dosage: 114.8 MG, CYCLIC (06 CYCLES, EVERY THREE WEEKS)
     Dates: start: 20140904, end: 20150101
  23. SODIUM CHLORIDE. [Concomitant]
     Active Substance: SODIUM CHLORIDE
     Dosage: UNK

REACTIONS (4)
  - Alopecia [Not Recovered/Not Resolved]
  - Hair texture abnormal [Not Recovered/Not Resolved]
  - Hair colour changes [Not Recovered/Not Resolved]
  - Hair disorder [Not Recovered/Not Resolved]

NARRATIVE: CASE EVENT DATE: 20141001
